FAERS Safety Report 5018171-5 (Version None)
Quarter: 2006Q2

REPORT INFORMATION
  Report Type: 
  Country: None (occurrence: None)
  Receive Date: 20060530
  Receipt Date: 20060518
  Transmission Date: 20061013
  Serious: Yes (Hospitalization)
  Sender: FDA-Public Use
  Company Number: 2006042565

PATIENT
  Age: 66 Year
  Sex: Male
  Weight: 52 kg

DRUGS (6)
  1. ATORVASTATIN CALCIUM [Suspect]
     Indication: CORONARY ARTERY DISEASE
     Dosage: 20 (DAILY), ORAL
     Route: 048
     Dates: start: 20051010, end: 20060225
  2. ATORVASTATIN CALCIUM [Suspect]
     Indication: HYPERCHOLESTEROLAEMIA
     Dosage: 20 (DAILY), ORAL
     Route: 048
     Dates: start: 20051010, end: 20060225
  3. RAMIPRIL [Concomitant]
  4. METOPROLOL SUCCINATE [Concomitant]
  5. PLAVIX [Concomitant]
  6. EZETROL (EZETIMIBE) [Concomitant]

REACTIONS (9)
  - BACK PAIN [None]
  - DRUG INEFFECTIVE [None]
  - INTERVERTEBRAL DISC PROTRUSION [None]
  - MUSCULAR WEAKNESS [None]
  - MUSCULOSKELETAL PAIN [None]
  - MYALGIA [None]
  - PAIN IN EXTREMITY [None]
  - PARAESTHESIA [None]
  - SHOULDER PAIN [None]
